FAERS Safety Report 9034615 (Version 3)
Quarter: 2013Q1

REPORT INFORMATION
  Report Type: Spontaneous
  Country: IT (occurrence: None)
  Receive Date: 20130115
  Receipt Date: 20130212
  Transmission Date: 20140127
  Serious: Yes (Hospitalization)
  Sender: FDA-Public Use
  Company Number: TIF2013A00004

PATIENT
  Age: 69 Year
  Sex: Male

DRUGS (4)
  1. ACTOS (PIOGLITAZONE HYDROCHLORIDE) [Suspect]
     Indication: DIABETES MELLITUS
     Route: 048
     Dates: start: 20110615, end: 20121220
  2. METFORMIN (METFORMIN) [Concomitant]
  3. CARDIOASPIRIN (ACETYLSALICYLIC ACID) [Concomitant]
  4. TORVAST (ATORVASTATIN CALCIUM) [Concomitant]

REACTIONS (4)
  - Lung adenocarcinoma [None]
  - Lung adenocarcinoma metastatic [None]
  - Bladder cancer recurrent [None]
  - Atrial fibrillation [None]
